FAERS Safety Report 16217773 (Version 1)
Quarter: 2019Q2

REPORT INFORMATION
  Report Type: Spontaneous
  Country: US (occurrence: US)
  Receive Date: 20190419
  Receipt Date: 20190419
  Transmission Date: 20190711
  Serious: Yes (Other)
  Sender: FDA-Public Use
  Company Number: US-BAYER-2019-075293

PATIENT
  Sex: Female
  Weight: 43 kg

DRUGS (4)
  1. VITAMINS NOS [Concomitant]
     Active Substance: VITAMINS
     Dosage: UNK
  2. ONE A DAY ESSENTIAL [Suspect]
     Active Substance: VITAMINS
     Indication: NUTRITIONAL SUPPLEMENTATION
     Dosage: 1 DF, QD
     Route: 048
  3. BAYER ASPIRIN [Suspect]
     Active Substance: ASPIRIN
     Indication: ANTICOAGULANT THERAPY
     Dosage: 1 DF, QD
     Route: 048
     Dates: start: 2017
  4. LISINOPRIL. [Concomitant]
     Active Substance: LISINOPRIL
     Indication: HYPERTENSION
     Dosage: UNK

REACTIONS (10)
  - Cardiac failure [None]
  - Colonoscopy [None]
  - Cardiomyopathy [Unknown]
  - Bronchitis [Recovered/Resolved]
  - Amnesia [None]
  - Hypertension [Unknown]
  - Adverse event [None]
  - Colonoscopy [None]
  - Alopecia [Unknown]
  - Nail disorder [None]

NARRATIVE: CASE EVENT DATE: 2015
